FAERS Safety Report 26121644 (Version 1)
Quarter: 2025Q4

REPORT INFORMATION
  Report Type: Report from Study
  Country: EU (occurrence: EU)
  Receive Date: 20251204
  Receipt Date: 20251204
  Transmission Date: 20260118
  Serious: Yes (Disabling)
  Sender: TEVA
  Company Number: EU-TEVA-VS-3398727

PATIENT
  Age: 53 Year
  Sex: Female

DRUGS (6)
  1. TERIPARATIDE [Suspect]
     Active Substance: TERIPARATIDE
     Indication: Osteoporosis
     Dosage: 20 MCG/ 80MCL
     Route: 065
     Dates: start: 20251124
  2. FENTANYL [Concomitant]
     Active Substance: FENTANYL
     Indication: Pain
     Dosage: DOSE: ONE EVERY 72 HOURS ( SIMULTANEOUS WITH 25 MG); START DATE: SOME TIME AGO; END DATE: CONTINUES.
  3. FENTANYL [Concomitant]
     Active Substance: FENTANYL
     Indication: Pain
     Dosage: DOSE: ONE EVERY 72 HOURS ( SIMULTANEOUS WITH 12  MG); START DATE: SOME TIME AGO; END DATE: CONTIN...
     Route: 065
  4. LYRICA [Concomitant]
     Active Substance: PREGABALIN
     Indication: Pain
     Dosage: TIME INTERVAL: 0.33333333 DAYS: DOSE: ONE IN THE MORNING, ONE IN THE AFTERNOON AND ONE AT NIGHT; ...
     Route: 065
  5. ACETAMINOPHEN [Concomitant]
     Active Substance: ACETAMINOPHEN
     Indication: Pain
     Dosage: TIME INTERVAL: 0.33333333 DAYS: DOSE: ONE IN THE MORNING, ONE IN THE AFTERNOON AND ONE AT NIGHT; ...
     Route: 065
  6. Nolotil [Concomitant]
     Indication: Pain
     Dosage: TIME INTERVAL: AS NECESSARY: DOSE: IF NEEDED; START DATE: SOME TIME AGO; END DATE: CONTINUES.
     Route: 065

REACTIONS (1)
  - Somnolence [Not Recovered/Not Resolved]

NARRATIVE: CASE EVENT DATE: 20251125
